FAERS Safety Report 9652760 (Version 2)
Quarter: 2014Q1

REPORT INFORMATION
  Report Type: Spontaneous
  Country: IT (occurrence: IT)
  Receive Date: 20131029
  Receipt Date: 20140103
  Transmission Date: 20141002
  Serious: Yes (Hospitalization)
  Sender: FDA-Public Use
  Company Number: IT-BAYER-2013-131420

PATIENT
  Age: 66 Year
  Sex: Female

DRUGS (4)
  1. CARDIOASPIRIN [Suspect]
     Indication: INTENTIONAL SELF-INJURY
     Dosage: 3000 MG, ONCE
     Route: 048
     Dates: start: 20131006, end: 20131006
  2. RISPERIDONE [Suspect]
     Indication: INTENTIONAL SELF-INJURY
     Dosage: 16 MG, ONCE
     Route: 048
     Dates: start: 20131006, end: 20131006
  3. CITALOPRAM [Suspect]
     Indication: INTENTIONAL SELF-INJURY
     Dosage: 100 MG, ONCE
     Route: 048
     Dates: start: 20131006, end: 20131006
  4. TRIATEC [Concomitant]
     Dosage: UNK

REACTIONS (4)
  - Tachycardia [Recovering/Resolving]
  - Intentional self-injury [Recovering/Resolving]
  - Sopor [Recovering/Resolving]
  - Overdose [None]
